FAERS Safety Report 11779115 (Version 1)
Quarter: 2015Q4

REPORT INFORMATION
  Report Type: Spontaneous
  Country: IT (occurrence: IT)
  Receive Date: 20151125
  Receipt Date: 20151125
  Transmission Date: 20160304
  Serious: Yes (Hospitalization)
  Sender: FDA-Public Use
  Company Number: IT-TEVA-610976ACC

PATIENT
  Age: 77 Year
  Sex: Female

DRUGS (3)
  1. FLUOROURACILE TEVA - 5 G/100 ML SOLUZIONE PER INFUSIONE [Suspect]
     Active Substance: FLUOROURACIL
     Indication: GASTRIC CANCER
     Dosage: 700 MG CYCLICAL
     Route: 042
     Dates: start: 20151007, end: 20151007
  2. OXALIPLATINO KABI - 5 MG/ML CONCENTRATO PER SOLUZIONE PER INFUSIONE [Suspect]
     Active Substance: OXALIPLATIN
     Indication: GASTRIC CANCER
     Dosage: 115 MG CYCLICAL
     Route: 042
     Dates: start: 20151007, end: 20151007
  3. CALCIO LEVOFOLINATO TEVA - 175 MG POLVERE PER SOLUZIONE PER INFUSIONE [Suspect]
     Active Substance: LEVOLEUCOVORIN CALCIUM
     Indication: GASTRIC CANCER
     Dosage: 30 MG CYCLICAL
     Route: 065
     Dates: start: 20151007, end: 20151007

REACTIONS (4)
  - Electrocardiogram ST segment depression [Recovering/Resolving]
  - Acute myocardial infarction [Recovering/Resolving]
  - Angina pectoris [Recovering/Resolving]
  - Hypokinesia [Recovering/Resolving]

NARRATIVE: CASE EVENT DATE: 20151007
